FAERS Safety Report 10964869 (Version 1)
Quarter: 2015Q1

REPORT INFORMATION
  Report Type: Spontaneous
  Country: VN (occurrence: VN)
  Receive Date: 20150330
  Receipt Date: 20150330
  Transmission Date: 20150721
  Serious: Yes (Hospitalization)
  Sender: FDA-Public Use
  Company Number: VN-ROCHE-1556628

PATIENT
  Sex: Male

DRUGS (3)
  1. AVASTIN [Suspect]
     Active Substance: BEVACIZUMAB
     Indication: LUNG NEOPLASM MALIGNANT
     Dosage: 21 DAYS/CYCLES, 1ST LINE
     Route: 041
     Dates: start: 2014, end: 2014
  2. GEMCITABINE [Suspect]
     Active Substance: GEMCITABINE\GEMCITABINE HYDROCHLORIDE
     Indication: LUNG NEOPLASM MALIGNANT
     Dosage: 21 DAYS CYCLE, 1ST LINE TREATMENT
     Route: 041
     Dates: start: 2014, end: 2014
  3. CISPLATIN. [Suspect]
     Active Substance: CISPLATIN
     Indication: LUNG NEOPLASM MALIGNANT
     Dosage: 21 DAYS/CYCLE, 1ST LINE TREATMENT
     Route: 041
     Dates: start: 2014, end: 2014

REACTIONS (1)
  - Hypotonia [Recovered/Resolved]
